FAERS Safety Report 6138326-6 (Version None)
Quarter: 2009Q1

REPORT INFORMATION
  Report Type: 
  Country: None (occurrence: None)
  Receive Date: 20090327
  Receipt Date: 20090327
  Transmission Date: 20090719
  Serious: Yes (Other)
  Sender: FDA-Public Use
  Company Number: None

PATIENT
  Age: 62 Year
  Sex: Female
  Weight: 83.9154 kg

DRUGS (1)
  1. MIRAPEX [Suspect]
     Indication: RESTLESS LEGS SYNDROME
     Dosage: ONE BEFORE BEDTIME
     Dates: start: 20070801, end: 20071201

REACTIONS (3)
  - DISINHIBITION [None]
  - ECONOMIC PROBLEM [None]
  - MENTAL DISORDER [None]
